FAERS Safety Report 24647684 (Version 1)
Quarter: 2024Q4

REPORT INFORMATION
  Report Type: Spontaneous
  Country: US (occurrence: US)
  Receive Date: 20241121
  Receipt Date: 20241121
  Transmission Date: 20250115
  Serious: Yes (Other)
  Sender: PFIZER
  Company Number: US-PFIZER INC-PV202300088333

PATIENT
  Age: 80 Year
  Sex: Female
  Weight: 57.15 kg

DRUGS (5)
  1. IBRANCE [Suspect]
     Active Substance: PALBOCICLIB
     Indication: Breast cancer metastatic
     Dosage: 100 MG, CYCLIC (TAKE 1 TAB PO QD X 21D ON THEN 7D OFF FOR A 28 DAY)
     Route: 048
  2. IBRANCE [Suspect]
     Active Substance: PALBOCICLIB
     Dosage: 125 MG, CYCLIC (PER DAY FOR 3 WEEKS ON AND 1 WEEK OFF)
     Route: 048
     Dates: start: 202303
  3. IBRANCE [Suspect]
     Active Substance: PALBOCICLIB
     Dosage: 100 MG, CYCLIC (PER DAY FOR 3 WEEKS AND CURRENTLY ON HER WEEK OFF)
     Route: 048
     Dates: start: 202303, end: 20230901
  4. IBRANCE [Suspect]
     Active Substance: PALBOCICLIB
     Dosage: 75 MG, CYCLIC (FOR 3 WEEKS ON ONE-WEEK OFF)
     Route: 048
     Dates: start: 20231006
  5. FASLODEX [Concomitant]
     Active Substance: FULVESTRANT
     Indication: Breast cancer metastatic
     Dosage: UNK, MONTHLY

REACTIONS (4)
  - Thrombocytopenia [Unknown]
  - Leukopenia [Unknown]
  - Fatigue [Unknown]
  - Product prescribing issue [Unknown]

NARRATIVE: CASE EVENT DATE: 20230301
